FAERS Safety Report 10883170 (Version 2)
Quarter: 2016Q3

REPORT INFORMATION
  Report Type: Spontaneous
  Country: FR (occurrence: FR)
  Receive Date: 20150303
  Receipt Date: 20160819
  Transmission Date: 20161109
  Serious: Yes (Hospitalization)
  Sender: FDA-Public Use
  Company Number: FR-SA-2015SA024473

PATIENT
  Age: 51 Year
  Sex: Female

DRUGS (12)
  1. DOMPERIDONE ARROW [Suspect]
     Active Substance: DOMPERIDONE
     Indication: PROPHYLAXIS OF NAUSEA AND VOMITING
     Dosage: DOSE: 10 TO 30 MG PER DAY
     Route: 048
     Dates: start: 20141122, end: 20141128
  2. ATARAX [Suspect]
     Active Substance: HYDROXYZINE\HYDROXYZINE HYDROCHLORIDE
     Route: 048
     Dates: start: 20141119, end: 20141119
  3. DOMPERIDONE ARROW [Suspect]
     Active Substance: DOMPERIDONE
     Indication: PROPHYLAXIS OF NAUSEA AND VOMITING
     Dosage: DOSE: 10 TO 30 MG PER DAY
     Route: 048
     Dates: start: 20141122, end: 20141128
  4. INEXIUM [Suspect]
     Active Substance: ESOMEPRAZOLE
     Route: 048
     Dates: start: 20141121, end: 20141124
  5. LOVENOX [Suspect]
     Active Substance: ENOXAPARIN SODIUM
     Indication: THROMBOSIS PROPHYLAXIS
     Route: 058
     Dates: start: 20141121
  6. CIPROFLOXACINE MYLAN [Suspect]
     Active Substance: CIPROFLOXACIN
     Indication: POSTOPERATIVE WOUND INFECTION
     Route: 048
     Dates: start: 20141120, end: 20141220
  7. OXYNORMORO [Suspect]
     Active Substance: OXYCODONE
     Indication: PAIN PROPHYLAXIS
     Route: 048
     Dates: start: 20141120, end: 20141120
  8. DOLIPRANE [Suspect]
     Active Substance: ACETAMINOPHEN
     Indication: PAIN PROPHYLAXIS
     Dosage: DOSE: 2 TO 4 G
     Route: 048
     Dates: start: 20141121, end: 20141127
  9. AMIKACIN MYLAN [Suspect]
     Active Substance: AMIKACIN
     Indication: POSTOPERATIVE WOUND INFECTION
     Route: 042
     Dates: start: 20141120, end: 20141123
  10. BOSWELLIA SERRATA GUM/ALLANTOIN/2-BROMO-2-NITROPROPANE-1,3-DIOL/ALOE BARBADENSIS LEAF JUICE/AQUA/CIT [Concomitant]
     Route: 048
     Dates: start: 20141121
  11. VANCOMYCIN MYLAN [Suspect]
     Active Substance: VANCOMYCIN
     Indication: POSTOPERATIVE WOUND INFECTION
     Route: 042
     Dates: start: 20141120, end: 20141220
  12. ACUPAN [Suspect]
     Active Substance: NEFOPAM HYDROCHLORIDE
     Indication: PAIN PROPHYLAXIS
     Route: 048
     Dates: start: 20141121, end: 20141122

REACTIONS (1)
  - Drug reaction with eosinophilia and systemic symptoms [Recovering/Resolving]

NARRATIVE: CASE EVENT DATE: 20141220
